FAERS Safety Report 8581044-5 (Version None)
Quarter: 2012Q3

REPORT INFORMATION
  Report Type: 
  Country: None (occurrence: None)
  Receive Date: 20120809
  Receipt Date: 20120731
  Transmission Date: 20120928
  Serious: Yes (Other)
  Sender: FDA-Public Use
  Company Number: NL-ACCORD-014307

PATIENT
  Age: 52 Year
  Sex: Female

DRUGS (1)
  1. ANASTROZOLE [Suspect]
     Dates: start: 20120201

REACTIONS (2)
  - ARTHRALGIA [None]
  - PAIN [None]
